FAERS Safety Report 24023362 (Version 2)
Quarter: 2024Q2

REPORT INFORMATION
  Report Type: Report from Study
  Country: KR (occurrence: KR)
  Receive Date: 20240627
  Receipt Date: 20240627
  Transmission Date: 20240716
  Serious: No
  Sender: FDA-Public Use
  Company Number: KR-ROCHE-3564878

PATIENT
  Age: 54 Year
  Sex: Female

DRUGS (2)
  1. VABYSMO [Suspect]
     Active Substance: FARICIMAB\FARICIMAB-SVOA
     Indication: Diabetic retinal oedema
     Dosage: 2ND VABYSMO INJECTION IN RIGHT EYE ON 02/MAY/2024
     Route: 065
     Dates: start: 20240222
  2. VABYSMO [Suspect]
     Active Substance: FARICIMAB\FARICIMAB-SVOA
     Dosage: LEFT EYE.?2ND VABYSMO INJECTION IN LEFT EYE ON 09/MAY/2024
     Route: 065
     Dates: start: 20240228

REACTIONS (2)
  - Off label use [Unknown]
  - No adverse event [Unknown]
